FAERS Safety Report 9053899 (Version 1)
Quarter: 2013Q1

REPORT INFORMATION
  Report Type: Spontaneous
  Country: GB (occurrence: GB)
  Receive Date: 20130206
  Receipt Date: 20130206
  Transmission Date: 20140127
  Serious: Yes (Hospitalization)
  Sender: FDA-Public Use
  Company Number: GB-RANBAXY-2013R1-64883

PATIENT
  Sex: Female

DRUGS (1)
  1. DONEPEZIL [Suspect]
     Indication: PRODUCT USED FOR UNKNOWN INDICATION
     Dosage: 10 MG, QD
     Route: 048
     Dates: start: 20121219, end: 20130111

REACTIONS (4)
  - Elevated mood [Recovered/Resolved]
  - Mania [Recovered/Resolved]
  - Overconfidence [Recovered/Resolved]
  - Insomnia [Recovered/Resolved]
